FAERS Safety Report 7921451 (Version 6)
Quarter: 2012Q4

REPORT INFORMATION
  Report Type: 
  Country: US (occurrence: US)
  Receive Date: 20110429
  Receipt Date: 20121108
  Transmission Date: 20130627
  Serious: Yes (Other)
  Sender: FDA-Public Use
  Company Number: US-ASTRAZENECA-2010SE32603

PATIENT
  Age: 65 Year
  Sex: Female

DRUGS (5)
  1. NEXIUM [Suspect]
     Route: 048
  2. HYDROCODONE [Concomitant]
  3. 14 DIFFERENT UNSPECIFIED MEDICATIONS [Concomitant]
  4. GABAPENTIN [Concomitant]
  5. PREVACID [Concomitant]

REACTIONS (20)
  - Accident [Unknown]
  - Back injury [Unknown]
  - Foot fracture [Unknown]
  - Fibula fracture [Unknown]
  - Tibia fracture [Unknown]
  - Fall [Unknown]
  - Myocardial infarction [Unknown]
  - Neck injury [Unknown]
  - Pain [Unknown]
  - Gastrointestinal disorder [Unknown]
  - Gastric disorder [Unknown]
  - Chronic obstructive pulmonary disease [Unknown]
  - Cardiac disorder [Unknown]
  - Confusional state [Unknown]
  - Diarrhoea [Unknown]
  - Abdominal pain upper [Unknown]
  - Dementia Alzheimer^s type [Unknown]
  - Amnesia [Unknown]
  - Dementia [Unknown]
  - Drug dose omission [Unknown]
